FAERS Safety Report 5497023-0 (Version None)
Quarter: 2007Q4

REPORT INFORMATION
  Report Type: 
  Country: None (occurrence: None)
  Receive Date: 20071018
  Receipt Date: 20070109
  Transmission Date: 20080405
  Serious: Yes (Other)
  Sender: FDA-Public Use
  Company Number: 2005103265

PATIENT
  Age: 34 Year
  Sex: Male
  Weight: 68 kg

DRUGS (6)
  1. GABAPENTIN [Suspect]
     Indication: DEPRESSION
     Dosage: (300 MG)
  2. ALL OTHER THERAPEUTIC PRODUCTS (ALL OTHER THERAPEUTIC PRODUCTS) [Suspect]
     Indication: ILL-DEFINED DISORDER
  3. ALCOHOL (ETHANOL) [Suspect]
  4. PAXIL [Concomitant]
  5. TRAZODONE HCL [Concomitant]
  6. WELLBUTRIN [Concomitant]

REACTIONS (6)
  - DEPRESSION [None]
  - DISTURBANCE IN ATTENTION [None]
  - DRUG INEFFECTIVE [None]
  - HOSTILITY [None]
  - OVERDOSE [None]
  - SUICIDE ATTEMPT [None]
